FAERS Safety Report 23994134 (Version 1)
Quarter: 2024Q2

REPORT INFORMATION
  Report Type: Spontaneous
  Country: IE (occurrence: IE)
  Receive Date: 20240620
  Receipt Date: 20240620
  Transmission Date: 20240716
  Serious: Yes (Other)
  Sender: FDA-Public Use
  Company Number: IE-PFIZER INC-PV202400080205

PATIENT
  Age: 40 Year
  Sex: Male

DRUGS (2)
  1. GENOTROPIN [Suspect]
     Active Substance: SOMATROPIN
     Dosage: 0.1 MG, ALTERNATE DAY
  2. GENOTROPIN [Suspect]
     Active Substance: SOMATROPIN
     Dosage: 0.2 MG, ALTERNATE DAY

REACTIONS (4)
  - Eye operation [Unknown]
  - Ocular procedural complication [Unknown]
  - Fatigue [Unknown]
  - Impaired healing [Unknown]
